FAERS Safety Report 8889321 (Version 2)
Quarter: 2013Q1

REPORT INFORMATION
  Report Type: Spontaneous
  Country: US (occurrence: US)
  Receive Date: 20121106
  Receipt Date: 20130123
  Transmission Date: 20140127
  Serious: Yes (Hospitalization)
  Sender: FDA-Public Use
  Company Number: US-BAUSCH-BL-2012-001476

PATIENT
  Age: 83 Year
  Sex: Male

DRUGS (2)
  1. BESIVANCE [Suspect]
     Indication: PREOPERATIVE CARE
     Dosage: 1-2 DROPS IN EACH EYE, TWO TIMES PER DAY
     Route: 047
     Dates: start: 20120902, end: 20120903
  2. NEPAFENAC [Suspect]
     Route: 047
     Dates: start: 20120902, end: 20120903

REACTIONS (3)
  - Malaise [Recovered/Resolved]
  - Pyrexia [Recovered/Resolved]
  - Disorientation [Recovered/Resolved]
